FAERS Safety Report 18776411 (Version 1)
Quarter: 2021Q1

REPORT INFORMATION
  Report Type: Spontaneous
  Country: KR (occurrence: KR)
  Receive Date: 20210122
  Receipt Date: 20210122
  Transmission Date: 20210419
  Serious: Yes (Hospitalization)
  Sender: FDA-Public Use
  Company Number: KR-ANIPHARMA-2021-KR-000003

PATIENT
  Age: 80 Year
  Sex: Female

DRUGS (3)
  1. ATACAND [Suspect]
     Active Substance: CANDESARTAN CILEXETIL
     Indication: PRODUCT USED FOR UNKNOWN INDICATION
     Dosage: 8 MG UNK / 16 MG UNK
     Route: 048
     Dates: start: 2017
  2. UNSPECIFIED [Concomitant]
     Active Substance: UNSPECIFIED INGREDIENT
     Route: 065
  3. ATENOL [Concomitant]
     Active Substance: ATENOLOL
     Route: 065

REACTIONS (9)
  - Dizziness [Unknown]
  - Diarrhoea [Unknown]
  - Gastrooesophageal reflux disease [Unknown]
  - Headache [Unknown]
  - Pneumonia [Unknown]
  - Oedema peripheral [Unknown]
  - Nausea [Unknown]
  - Diabetes mellitus [Unknown]
  - Ocular hyperaemia [Unknown]

NARRATIVE: CASE EVENT DATE: 2019
